FAERS Safety Report 5321300-7 (Version None)
Quarter: 2007Q2

REPORT INFORMATION
  Report Type: 
  Country: None (occurrence: None)
  Receive Date: 20070507
  Receipt Date: 20070507
  Transmission Date: 20071010
  Serious: Yes (Life-Threatening, Other)
  Sender: FDA-Public Use
  Company Number: None

PATIENT
  Age: 60 Year
  Sex: Female
  Weight: 64.4108 kg

DRUGS (1)
  1. ABILIFY [Suspect]
     Indication: BIPOLAR DISORDER
     Dosage: 2MG 3 X DAY PO
     Route: 048
     Dates: start: 20061115, end: 20070301

REACTIONS (6)
  - BREAST CYST [None]
  - BREAST ENLARGEMENT [None]
  - DEPRESSION [None]
  - DYSPNOEA [None]
  - LETHARGY [None]
  - WEIGHT INCREASED [None]
